FAERS Safety Report 11642708 (Version 1)
Quarter: 2015Q4

REPORT INFORMATION
  Report Type: Spontaneous
  Country: US (occurrence: US)
  Receive Date: 20151020
  Receipt Date: 20151020
  Transmission Date: 20160304
  Serious: No
  Sender: FDA-Public Use
  Company Number: US-ASTRAZENECA-2015SE97637

PATIENT
  Sex: Male
  Weight: 61.2 kg

DRUGS (11)
  1. TUDORZA PRESSAIR [Suspect]
     Active Substance: ACLIDINIUM BROMIDE
     Indication: EMPHYSEMA
     Route: 055
  2. LORAZEPAM. [Concomitant]
     Active Substance: LORAZEPAM
     Indication: NIGHTMARE
  3. VITAMIN B3 [Concomitant]
     Active Substance: NIACIN
     Indication: BONE DISORDER
  4. FLOVENT [Concomitant]
     Active Substance: FLUTICASONE PROPIONATE
     Indication: CHRONIC OBSTRUCTIVE PULMONARY DISEASE
     Dosage: TWO TIMES A DAY
  5. TUDORZA PRESSAIR [Suspect]
     Active Substance: ACLIDINIUM BROMIDE
     Indication: CHRONIC OBSTRUCTIVE PULMONARY DISEASE
     Route: 055
  6. FLUTICASONE [Concomitant]
     Active Substance: FLUTICASONE\FLUTICASONE PROPIONATE
     Indication: NASAL DECONGESTION THERAPY
     Dosage: DAILY
  7. VITAMIN B12 [Concomitant]
     Active Substance: CYANOCOBALAMIN
     Dosage: DAILY
  8. ST JOSEPH ASPIRIN [Concomitant]
  9. VENTOLIN [Concomitant]
     Active Substance: ALBUTEROL SULFATE
     Indication: CHRONIC OBSTRUCTIVE PULMONARY DISEASE
     Dosage: FOUR TIMES A DAY
  10. RISPERDONE [Concomitant]
     Active Substance: RISPERIDONE
     Indication: NIGHTMARE
  11. TERAZOSIN [Concomitant]
     Active Substance: TERAZOSIN\TERAZOSIN HYDROCHLORIDE
     Indication: MEMORY IMPAIRMENT

REACTIONS (5)
  - Cough [Unknown]
  - Nausea [Unknown]
  - Weight increased [Unknown]
  - Increased bronchial secretion [Unknown]
  - Nightmare [Unknown]
